FAERS Safety Report 14567942 (Version 1)
Quarter: 2018Q1

REPORT INFORMATION
  Report Type: Report from Study
  Country: US (occurrence: US)
  Receive Date: 20180223
  Receipt Date: 20180223
  Transmission Date: 20180509
  Serious: Yes (Death, Other)
  Sender: FDA-Public Use
  Company Number: US-GILEAD-2018-0322487

PATIENT
  Age: 76 Year
  Sex: Male

DRUGS (9)
  1. LISINOPRIL. [Concomitant]
     Active Substance: LISINOPRIL
  2. CRESTOR [Concomitant]
     Active Substance: ROSUVASTATIN CALCIUM
  3. BACTRIM [Concomitant]
     Active Substance: SULFAMETHOXAZOLE\TRIMETHOPRIM
  4. TOBRAMYCIN. [Concomitant]
     Active Substance: TOBRAMYCIN
  5. IDELALISIB [Suspect]
     Active Substance: IDELALISIB
     Indication: NON-HODGKIN^S LYMPHOMA
     Dosage: 150 MG, BID
     Route: 065
     Dates: start: 20160715
  6. CARVEDILOL. [Concomitant]
     Active Substance: CARVEDILOL
  7. GABAPENTIN. [Concomitant]
     Active Substance: GABAPENTIN
  8. CO Q 10                            /00517201/ [Concomitant]
  9. FLUDARABINE [Concomitant]
     Active Substance: FLUDARABINE PHOSPHATE

REACTIONS (1)
  - Death [Fatal]
